FAERS Safety Report 5532288-8 (Version None)
Quarter: 2007Q4

REPORT INFORMATION
  Report Type: 
  Country: None (occurrence: None)
  Receive Date: 20071203
  Receipt Date: 20071120
  Transmission Date: 20080405
  Serious: Yes (Hospitalization)
  Sender: FDA-Public Use
  Company Number: US-ELI_LILLY_AND_COMPANY-US200711004766

PATIENT
  Sex: Female

DRUGS (4)
  1. FORTEO [Suspect]
     Indication: OSTEOPOROSIS
     Dates: start: 20071107
  2. THYROID TAB [Concomitant]
     Dosage: 50 UG, UNK
  3. COUMADIN [Concomitant]
     Dosage: 2.5 MG, UNK
  4. TYLENOL EXTRA-STRENGTH [Concomitant]
     Indication: PROCEDURAL PAIN
     Dates: start: 20070101

REACTIONS (2)
  - COMPRESSION FRACTURE [None]
  - MUSCULOSKELETAL CHEST PAIN [None]
